FAERS Safety Report 7260212-9 (Version None)
Quarter: 2011Q1

REPORT INFORMATION
  Report Type: 
  Country: None (occurrence: None)
  Receive Date: 20110130
  Receipt Date: 20100903
  Transmission Date: 20110831
  Serious: No
  Sender: FDA-Public Use
  Company Number: US-ABBOTT-10P-163-0669885-00

PATIENT
  Sex: Female

DRUGS (3)
  1. XANAX [Concomitant]
     Indication: ANXIETY
  2. HUMIRA [Suspect]
     Indication: COLITIS ULCERATIVE
     Dates: start: 20100501
  3. WELLBUTRIN XL [Concomitant]
     Indication: DEPRESSION

REACTIONS (2)
  - ARTHRALGIA [None]
  - MYALGIA [None]
